FAERS Safety Report 18351006 (Version 1)
Quarter: 2020Q4

REPORT INFORMATION
  Report Type: Spontaneous
  Country: US (occurrence: US)
  Receive Date: 20201006
  Receipt Date: 20201006
  Transmission Date: 20210114
  Serious: Yes (Other)
  Sender: FDA-Public Use
  Company Number: US-MYLANLABS-2020M1084090

PATIENT
  Sex: Male

DRUGS (1)
  1. HALOPERIDOL. [Suspect]
     Active Substance: HALOPERIDOL
     Indication: PRODUCT USED FOR UNKNOWN INDICATION
     Dosage: UNK
     Route: 065

REACTIONS (7)
  - Cardiomyopathy [Unknown]
  - Cerebrovascular accident [Unknown]
  - Speech disorder [Unknown]
  - Pain [Unknown]
  - Dyskinesia [Unknown]
  - Personality disorder [Unknown]
  - Joint dislocation [Unknown]
